FAERS Safety Report 19828586 (Version 2)
Quarter: 2022Q3

REPORT INFORMATION
  Report Type: Report from Study
  Country: KR (occurrence: KR)
  Receive Date: 20210914
  Receipt Date: 20220726
  Transmission Date: 20221027
  Serious: Yes (Other)
  Sender: FDA-Public Use
  Company Number: KR-TAKEDA-2021TJP085324

PATIENT

DRUGS (9)
  1. NIRAPARIB [Suspect]
     Active Substance: NIRAPARIB
     Indication: Fallopian tube cancer
     Dosage: 200 MILLIGRAM
     Route: 048
     Dates: start: 20210503, end: 20210620
  2. NIRAPARIB [Suspect]
     Active Substance: NIRAPARIB
     Indication: Ovarian cancer recurrent
     Dosage: 200 MILLIGRAM, QD
     Route: 048
     Dates: start: 20210728, end: 20210820
  3. NIRAPARIB [Suspect]
     Active Substance: NIRAPARIB
     Dosage: 100 MILLIGRAM, QD
     Route: 048
     Dates: start: 20210915
  4. GASTER (FAMOTIDIN) [Concomitant]
     Indication: Prophylaxis
     Dosage: 20 MILLIGRAM, BID
     Route: 048
     Dates: start: 20201205, end: 20210620
  5. MAGO (MAGNESIUM OXIDE) [Concomitant]
     Indication: Prophylaxis
     Dosage: 500 MILLIGRAM, BID
     Route: 048
     Dates: start: 20201205, end: 20210620
  6. ACETAMINOPHEN [Concomitant]
     Active Substance: ACETAMINOPHEN
     Indication: Prophylaxis
     Dosage: 650 MILLIGRAM, PRN
     Route: 048
     Dates: start: 20201205, end: 20210620
  7. LEVAMLODIPINE\TELMISARTAN [Concomitant]
     Active Substance: LEVAMLODIPINE\TELMISARTAN
     Indication: Hypertension
     Dosage: 1 TAB, QD
     Route: 048
     Dates: start: 20201127, end: 20210620
  8. LENOGRASTIM [Concomitant]
     Active Substance: LENOGRASTIM
     Indication: Pancytopenia
     Dosage: 1 VIAL
     Route: 058
     Dates: start: 20210827, end: 20210830
  9. MAXIPIME [Concomitant]
     Active Substance: CEFEPIME HYDROCHLORIDE
     Indication: Pancytopenia
     Dosage: 2 VIAL, TID
     Route: 042
     Dates: start: 20210826, end: 20210831

REACTIONS (1)
  - Haemorrhage [Recovered/Resolved]
